FAERS Safety Report 17000489 (Version 3)
Quarter: 2019Q4

REPORT INFORMATION
  Report Type: Spontaneous
  Country: FR (occurrence: FR)
  Receive Date: 20191106
  Receipt Date: 20191119
  Transmission Date: 20200122
  Serious: Yes (Death, Life-Threatening, Hospitalization, Other)
  Sender: FDA-Public Use
  Company Number: FR-PFIZER INC-2019471723

PATIENT
  Age: 86 Year
  Sex: Female

DRUGS (1)
  1. AMIODARONE HCL [Suspect]
     Active Substance: AMIODARONE HYDROCHLORIDE
     Indication: VENTRICULAR EXTRASYSTOLES
     Dosage: 400 MG, UNK (FIVE DAYS PER WEEK)

REACTIONS (17)
  - Myxoedema coma [Not Recovered/Not Resolved]
  - Madarosis [Unknown]
  - Hypotension [Not Recovered/Not Resolved]
  - Mental status changes [Unknown]
  - Sinus bradycardia [Unknown]
  - Hypothyroidism [Not Recovered/Not Resolved]
  - Bradycardia [Unknown]
  - Vomiting [Unknown]
  - Blood thyroid stimulating hormone increased [Unknown]
  - Ileus paralytic [Not Recovered/Not Resolved]
  - Stupor [Unknown]
  - Electrocardiogram repolarisation abnormality [Unknown]
  - Oedema peripheral [Unknown]
  - Cardiac arrest [Fatal]
  - Macroglossia [Not Recovered/Not Resolved]
  - Temperature intolerance [Unknown]
  - Thyroxine decreased [Unknown]
